FAERS Safety Report 21606989 (Version 1)
Quarter: 2022Q4

REPORT INFORMATION
  Report Type: Spontaneous
  Country: JP (occurrence: JP)
  Receive Date: 20221117
  Receipt Date: 20221117
  Transmission Date: 20230113
  Serious: Yes (Hospitalization)
  Sender: FDA-Public Use
  Company Number: JP-BAYER-2022A156958

PATIENT
  Age: 87 Year
  Sex: Female

DRUGS (1)
  1. EYLEA [Suspect]
     Active Substance: AFLIBERCEPT
     Indication: Age-related macular degeneration
     Dosage: UNK; SOLUTION FOR INJECTION IN PRE-FILLED SYRINGE ; 40 MG/ML

REACTIONS (1)
  - Pneumonia [Recovered/Resolved]
